FAERS Safety Report 15867623 (Version 1)
Quarter: 2019Q1

REPORT INFORMATION
  Report Type: Report from Study
  Country: BR (occurrence: BR)
  Receive Date: 20190125
  Receipt Date: 20190125
  Transmission Date: 20190417
  Serious: Yes (Other)
  Sender: FDA-Public Use
  Company Number: BR-BAYER-2019-014783

PATIENT
  Age: 46 Year
  Sex: Female

DRUGS (3)
  1. STIVARGA [Suspect]
     Active Substance: REGORAFENIB
     Indication: HEPATOCELLULAR CARCINOMA
     Dosage: 160 MG, QD
     Route: 048
     Dates: start: 201812, end: 201901
  2. VENLAFAXINE [Concomitant]
     Active Substance: VENLAFAXINE HYDROCHLORIDE
     Indication: DEPRESSION
     Dosage: 1 TABLET DAY
  3. STIVARGA [Suspect]
     Active Substance: REGORAFENIB
     Indication: HEPATOCELLULAR CARCINOMA
     Dosage: 80 MG, QD
     Route: 048
     Dates: start: 20190116

REACTIONS (7)
  - Skin discolouration [Recovered/Resolved]
  - Decreased appetite [None]
  - Feeling abnormal [None]
  - Asthenia [None]
  - Gait disturbance [Not Recovered/Not Resolved]
  - Blister [None]
  - Diarrhoea [None]

NARRATIVE: CASE EVENT DATE: 201812
